FAERS Safety Report 9195144 (Version 1)
Quarter: 2013Q1

REPORT INFORMATION
  Report Type: Spontaneous
  Country: None (occurrence: US)
  Receive Date: 20130328
  Receipt Date: 20130328
  Transmission Date: 20140127
  Serious: No
  Sender: FDA-Public Use
  Company Number: US-ALLERGAN-1208460US

PATIENT
  Age: 73 Year
  Sex: Female

DRUGS (2)
  1. LUMIGAN [Suspect]
     Indication: PRODUCT USED FOR UNKNOWN INDICATION
     Route: 047
  2. LUMIGAN [Suspect]
     Route: 047

REACTIONS (4)
  - Madarosis [Unknown]
  - Madarosis [Unknown]
  - Trichorrhexis [Unknown]
  - Growth of eyelashes [Unknown]
